FAERS Safety Report 21411629 (Version 1)
Quarter: 2022Q4

REPORT INFORMATION
  Report Type: Spontaneous
  Country: DE (occurrence: DE)
  Receive Date: 20221005
  Receipt Date: 20221005
  Transmission Date: 20230112
  Serious: No
  Sender: FDA-Public Use
  Company Number: DE-CHEMOCENTRYX, INC.-2022DECCXI0253

PATIENT

DRUGS (1)
  1. TAVNEOS [Suspect]
     Active Substance: AVACOPAN
     Indication: Product used for unknown indication
     Dosage: 2 X 30 MG (30 MG)
     Route: 048

REACTIONS (1)
  - Infection [Unknown]
